FAERS Safety Report 7467646-8 (Version None)
Quarter: 2011Q2

REPORT INFORMATION
  Report Type: 
  Country: None (occurrence: None)
  Receive Date: 20110509
  Receipt Date: 20110504
  Transmission Date: 20111010
  Serious: Yes (Other)
  Sender: FDA-Public Use
  Company Number: US-PFIZER INC-2011092350

PATIENT
  Sex: Male
  Weight: 54.422 kg

DRUGS (2)
  1. LYRICA [Suspect]
  2. LYRICA [Suspect]
     Indication: NEUROPATHY PERIPHERAL
     Dosage: 150 MG, 3X/DAY
     Route: 048
     Dates: start: 20100101

REACTIONS (2)
  - IMPAIRED WORK ABILITY [None]
  - WITHDRAWAL SYNDROME [None]
